FAERS Safety Report 9387593 (Version 2)
Quarter: 2013Q3

REPORT INFORMATION
  Report Type: Spontaneous
  Country: JP (occurrence: None)
  Receive Date: 20130621
  Receipt Date: 20130820
  Transmission Date: 20140515
  Serious: Yes (Hospitalization)
  Sender: FDA-Public Use
  Company Number: 0239504

PATIENT
  Age: 60 Year
  Sex: Male

DRUGS (7)
  1. TACHOSIL [Suspect]
     Indication: PROPHYLAXIS
     Dosage: (1 SHEET OF REGULAR SIZE)
     Dates: start: 20121128
  2. PREDONINE (PREDNISOLONE) PER ORAL NOS [Concomitant]
  3. NORVASC (AMLODIPINE) [Concomitant]
  4. BLOPRESS (CANDESARTAN CIEXETIL) [Concomitant]
  5. TAKEPRON (LANSOPRAZOLE) [Concomitant]
  6. LOXONIN (LOXOPOFEN SODIUM) [Concomitant]
  7. BAKTAR (BACTRIM) (TABLETS) [Concomitant]

REACTIONS (2)
  - Pneumothorax [None]
  - White blood cell count increased [None]
